FAERS Safety Report 5677627-2 (Version None)
Quarter: 2008Q1

REPORT INFORMATION
  Report Type: 
  Country: None (occurrence: None)
  Receive Date: 20080318
  Receipt Date: 20080306
  Transmission Date: 20080703
  Serious: Yes (Hospitalization)
  Sender: FDA-Public Use
  Company Number: 2007SP007552

PATIENT
  Age: 40 Year
  Sex: Male
  Weight: 82.4 kg

DRUGS (5)
  1. TEMOZOLOMIDE [Suspect]
     Indication: METASTATIC MALIGNANT MELANOMA
     Dosage: 320 MG
     Dates: start: 20051215, end: 20070416
  2. TEMOZOLOMIDE [Suspect]
     Indication: METASTATIC MALIGNANT MELANOMA
     Dosage: 320 MG
     Dates: start: 20070605, end: 20070611
  3. TEMOZOLOMIDE [Suspect]
     Indication: METASTATIC MALIGNANT MELANOMA
     Dosage: 320 MG
     Dates: start: 20070619, end: 20070625
  4. DOMPERIDONE [Concomitant]
  5. PREDNISOLONE [Concomitant]

REACTIONS (10)
  - BLOOD BILIRUBIN INCREASED [None]
  - BLOOD LACTATE DEHYDROGENASE INCREASED [None]
  - BONE MARROW TOXICITY [None]
  - DEHYDRATION [None]
  - DIZZINESS [None]
  - HAEMOLYTIC ANAEMIA [None]
  - NAUSEA [None]
  - OVERDOSE [None]
  - TREATMENT NONCOMPLIANCE [None]
  - VOMITING [None]
